FAERS Safety Report 6861488-X (Version None)
Quarter: 2010Q3

REPORT INFORMATION
  Report Type: 
  Country: None (occurrence: None)
  Receive Date: 20100720
  Receipt Date: 20100720
  Transmission Date: 20110219
  Serious: No
  Sender: FDA-Public Use
  Company Number: None

PATIENT
  Age: 36 Year
  Sex: Male
  Weight: 68.0396 kg

DRUGS (1)
  1. RIFAXIMIN [Suspect]
     Dosage: 400MG 4 TIMES A DAY PO
     Route: 048

REACTIONS (1)
  - IRRITABLE BOWEL SYNDROME [None]
